FAERS Safety Report 9303581 (Version 2)
Quarter: 2013Q2

REPORT INFORMATION
  Report Type: Spontaneous
  Country: US (occurrence: US)
  Receive Date: 20130522
  Receipt Date: 20130620
  Transmission Date: 20140414
  Serious: Yes (Other)
  Sender: FDA-Public Use
  Company Number: PHEH2013US011191

PATIENT
  Sex: Female

DRUGS (6)
  1. DIOVAN HCT [Suspect]
     Dosage: 1 DF (80MG VALS,12.5MG HYDR)
  2. DIOVAN HCT [Suspect]
     Dosage: UNK UKN, UNK
  3. HYDROCHLOROTHIAZIDE,VALSARTAN [Suspect]
  4. CARDIZEM [Concomitant]
     Indication: HEART RATE INCREASED
     Dosage: 1 DF, PER DAY
  5. SYNTHROID [Concomitant]
  6. PLAVIX [Concomitant]

REACTIONS (6)
  - Extrasystoles [Unknown]
  - Heart rate increased [Unknown]
  - Palpitations [Unknown]
  - Blood pressure inadequately controlled [Unknown]
  - Malaise [Unknown]
  - General physical health deterioration [Unknown]
